FAERS Safety Report 8450239-3 (Version None)
Quarter: 2012Q2

REPORT INFORMATION
  Report Type: 
  Country: None (occurrence: None)
  Receive Date: 20120614
  Receipt Date: 20120614
  Transmission Date: 20120825
  Serious: Yes (Other)
  Sender: FDA-Public Use
  Company Number: None

PATIENT
  Age: 37 Year
  Sex: Female
  Weight: 90.7194 kg

DRUGS (1)
  1. METRONIDAZOLE [Suspect]
     Indication: WOUND INFECTION
     Dosage: 500MG, BID, PO
     Route: 048
     Dates: start: 20110901, end: 20110907

REACTIONS (1)
  - PANCREATITIS ACUTE [None]
